FAERS Safety Report 5978734-7 (Version None)
Quarter: 2008Q4

REPORT INFORMATION
  Report Type: 
  Country: None (occurrence: None)
  Receive Date: 20081126
  Receipt Date: 20081120
  Transmission Date: 20090506
  Serious: Yes (Death)
  Sender: FDA-Public Use
  Company Number: 2008-04387

PATIENT
  Age: 75 Year
  Sex: Female
  Weight: 49 kg

DRUGS (13)
  1. VELCADE [Suspect]
     Indication: MULTIPLE MYELOMA
     Dosage: 1.2 MG ,  INTRAVENOUS;  1.7 MG ,  INTRAVENOUS
     Route: 042
     Dates: start: 20070508, end: 20070514
  2. VELCADE [Suspect]
     Indication: MULTIPLE MYELOMA
     Dosage: 1.2 MG ,  INTRAVENOUS;  1.7 MG ,  INTRAVENOUS
     Route: 042
     Dates: start: 20070529, end: 20071010
  3. DEXAMETHASONE [Concomitant]
  4. ACYCLOVIR [Concomitant]
  5. ONE-ALPHA (ALFACALCIDOL) [Concomitant]
  6. RISEDRONATE SODIUM [Concomitant]
  7. LOSARTAN POTASSIUM [Concomitant]
  8. MARZULENE S (LEVOGLUTAMIDE, SODIUM GUALENATE) [Concomitant]
  9. JUVELA N (TOCOPHERYL NICOTINATE) [Concomitant]
  10. MAGNESIUM OXIDE (MAGNESIUM OXIDE) [Concomitant]
  11. BACTRIM [Concomitant]
  12. ZOMETA [Concomitant]
  13. ALBUMIN TANNATE (ALBUMIN TANNATE) [Concomitant]

REACTIONS (7)
  - CONSTIPATION [None]
  - DIARRHOEA [None]
  - DRY MOUTH [None]
  - INFECTION [None]
  - NERVE INJURY [None]
  - PLATELET COUNT DECREASED [None]
  - UPPER RESPIRATORY TRACT INFLAMMATION [None]
